FAERS Safety Report 9006169 (Version 1)
Quarter: 2012Q4

REPORT INFORMATION
  Report Type: Spontaneous
  Country: US (occurrence: None)
  Receive Date: 20121226
  Receipt Date: 20121226
  Transmission Date: 20130627
  Serious: Yes (Death, Life-Threatening, Hospitalization, Other)
  Sender: FDA-Public Use
  Company Number: ADR-2012-02272

PATIENT
  Age: 27 Year
  Sex: Male
  Weight: 50 kg

DRUGS (4)
  1. LIORESAL INTRATHECAL (BACLOFEN INJECTION) [Suspect]
     Indication: SPASTICITY
  2. DEPAKOTE SPRINKLES [Concomitant]
  3. TRIHEXYPHENIDYL [Concomitant]
  4. XENAZINE [Concomitant]

REACTIONS (22)
  - Faecaloma [None]
  - Urinary tract infection [None]
  - Haematemesis [None]
  - Cardiac arrest [None]
  - Skin discolouration [None]
  - Large intestinal obstruction [None]
  - Bladder neck obstruction [None]
  - Chromaturia [None]
  - Renal failure [None]
  - Myocardial ischaemia [None]
  - Hyperkalaemia [None]
  - Lactic acidosis [None]
  - Livedo reticularis [None]
  - Coma [None]
  - Hypoperfusion [None]
  - Hypothermia [None]
  - Cardiopulmonary failure [None]
  - Bacterial sepsis [None]
  - Gastrointestinal disorder [None]
  - Hypotension [None]
  - Hypoxia [None]
  - Bacterial translocation [None]
